FAERS Safety Report 8537991 (Version 12)
Quarter: 2013Q4

REPORT INFORMATION
  Report Type: Report from Study
  Country: CA (occurrence: CA)
  Receive Date: 20120501
  Receipt Date: 20131206
  Transmission Date: 20140711
  Serious: Yes (Hospitalization, Other)
  Sender: FDA-Public Use
  Company Number: CA-ROCHE-1043973

PATIENT
  Age: 19 Year
  Sex: Female
  Weight: 86 kg

DRUGS (7)
  1. ACTEMRA [Suspect]
     Indication: JUVENILE IDIOPATHIC ARTHRITIS
     Route: 042
     Dates: start: 20110518
  2. ACTEMRA [Suspect]
     Route: 065
     Dates: end: 20120926
  3. LANSOPRAZOLE [Concomitant]
  4. TYLENOL ARTHRITIS [Concomitant]
  5. PERCOCET [Concomitant]
     Indication: PAIN
     Dosage: 4 PILLS
     Route: 065
     Dates: start: 20120411, end: 20120411
  6. NAPROXEN [Concomitant]
  7. PREDNISONE [Concomitant]

REACTIONS (14)
  - Vaginal haemorrhage [Recovered/Resolved]
  - Abortion spontaneous [Unknown]
  - Systemic lupus erythematosus [Not Recovered/Not Resolved]
  - Tenosynovitis [Not Recovered/Not Resolved]
  - Abortion [Unknown]
  - Exposure during pregnancy [Unknown]
  - Human chorionic gonadotropin decreased [Recovered/Resolved]
  - Haemorrhage [Recovered/Resolved]
  - Muscle spasms [Recovered/Resolved]
  - Unevaluable event [Recovered/Resolved]
  - Rheumatoid arthritis [Not Recovered/Not Resolved]
  - Weight increased [Unknown]
  - Myalgia [Not Recovered/Not Resolved]
  - Nasopharyngitis [Recovered/Resolved]
